FAERS Safety Report 22609054 (Version 1)
Quarter: 2023Q2

REPORT INFORMATION
  Report Type: Spontaneous
  Country: US (occurrence: US)
  Receive Date: 20230616
  Receipt Date: 20230616
  Transmission Date: 20230722
  Serious: Yes (Other)
  Sender: FDA-Public Use
  Company Number: US-AUROBINDO-AUR-APL-2023-041984

PATIENT
  Age: 50 Year
  Sex: Female

DRUGS (5)
  1. CAPECITABINE [Suspect]
     Active Substance: CAPECITABINE
     Indication: Cholangiocarcinoma
     Dosage: LOW DOSE
     Route: 065
  2. CISPLATIN [Suspect]
     Active Substance: CISPLATIN
     Indication: Cholangiocarcinoma
     Dosage: UNK
     Route: 065
  3. GEMCITABINE [Suspect]
     Active Substance: GEMCITABINE
     Indication: Cholangiocarcinoma
     Dosage: UNK
     Route: 065
  4. FUTIBATINIB [Concomitant]
     Active Substance: FUTIBATINIB
     Indication: Cholangiocarcinoma
     Dosage: 20 MILLIGRAM
     Route: 065
  5. FUTIBATINIB [Concomitant]
     Active Substance: FUTIBATINIB
     Dosage: 16 MILLIGRAM
     Route: 065

REACTIONS (1)
  - Drug ineffective [Unknown]
